FAERS Safety Report 16969261 (Version 1)
Quarter: 2019Q4

REPORT INFORMATION
  Report Type: Report from Study
  Country: US (occurrence: US)
  Receive Date: 20191029
  Receipt Date: 20191029
  Transmission Date: 20200122
  Serious: Yes (Other)
  Sender: FDA-Public Use
  Company Number: US-ROCHE-2418645

PATIENT
  Age: 58 Year
  Sex: Female
  Weight: 74.91 kg

DRUGS (3)
  1. OCREVUS [Suspect]
     Active Substance: OCRELIZUMAB
     Indication: RELAPSING-REMITTING MULTIPLE SCLEROSIS
     Dosage: YES
     Route: 042
     Dates: start: 20190913
  2. AMPYRA [Concomitant]
     Active Substance: DALFAMPRIDINE
     Indication: RELAPSING-REMITTING MULTIPLE SCLEROSIS
     Route: 065
  3. PROZAC [Concomitant]
     Active Substance: FLUOXETINE HYDROCHLORIDE
     Indication: DEPRESSION
     Route: 065

REACTIONS (2)
  - Throat tightness [Recovered/Resolved]
  - Throat irritation [Recovered/Resolved]

NARRATIVE: CASE EVENT DATE: 20190913
